FAERS Safety Report 22235100 (Version 1)
Quarter: 2023Q2

REPORT INFORMATION
  Report Type: Spontaneous
  Country: AT (occurrence: AT)
  Receive Date: 20230420
  Receipt Date: 20230420
  Transmission Date: 20230722
  Serious: Yes (Death, Other)
  Sender: FDA-Public Use
  Company Number: AT-DSJP-DSE-2023-115538

PATIENT
  Age: 50 Year
  Sex: Male

DRUGS (8)
  1. TRASTUZUMAB DERUXTECAN [Suspect]
     Active Substance: TRASTUZUMAB DERUXTECAN
     Indication: HER2 positive gastric cancer
     Dosage: 6.4 MG/KG, CYCLIC
     Route: 065
     Dates: start: 202111, end: 202205
  2. TRASTUZUMAB DERUXTECAN [Suspect]
     Active Substance: TRASTUZUMAB DERUXTECAN
     Indication: Metastatic gastric cancer
  3. APREPITANT [Concomitant]
     Active Substance: APREPITANT
     Indication: HER2 positive gastric cancer
     Dosage: UNK
     Route: 065
  4. APREPITANT [Concomitant]
     Active Substance: APREPITANT
     Indication: Metastatic gastric cancer
  5. DEXAMETHASONE [Concomitant]
     Active Substance: DEXAMETHASONE
     Indication: HER2 positive gastric cancer
     Dosage: UNK
     Route: 065
  6. DEXAMETHASONE [Concomitant]
     Active Substance: DEXAMETHASONE
     Indication: Metastatic gastric cancer
  7. PEGYLATED GRANULOCYTE COLONY STIMULATING FACTOR [Concomitant]
     Indication: HER2 positive gastric cancer
     Dosage: UNK
     Route: 065
  8. PEGYLATED GRANULOCYTE COLONY STIMULATING FACTOR [Concomitant]
     Indication: Metastatic gastric cancer

REACTIONS (5)
  - Hepatic failure [Fatal]
  - Hepatorenal syndrome [Fatal]
  - General physical health deterioration [Unknown]
  - Disease progression [Unknown]
  - Therapy partial responder [Unknown]

NARRATIVE: CASE EVENT DATE: 20220101
